FAERS Safety Report 21970818 (Version 1)
Quarter: 2023Q1

REPORT INFORMATION
  Report Type: Other
  Country: NO (occurrence: None)
  Receive Date: 20230209
  Receipt Date: 20230209
  Transmission Date: 20230418
  Serious: Yes (Other)
  Sender: FDA-Public Use
  Company Number: NO-ROCHE-3281022

PATIENT

DRUGS (1)
  1. ATEZOLIZUMAB [Suspect]
     Active Substance: ATEZOLIZUMAB
     Indication: Non-small cell lung cancer
     Dosage: FOR A MAXIMUM OF 2 YEARS UNTIL INTOLERABLE TOXICITY
     Route: 042

REACTIONS (1)
  - Skin toxicity [Recovering/Resolving]
